FAERS Safety Report 15350349 (Version 1)
Quarter: 2018Q3

REPORT INFORMATION
  Report Type: Spontaneous
  Country: ES (occurrence: ES)
  Receive Date: 20180905
  Receipt Date: 20180905
  Transmission Date: 20181010
  Serious: Yes (Other)
  Sender: FDA-Public Use
  Company Number: PHHY2018ES062717

PATIENT
  Age: 12 Year
  Sex: Male

DRUGS (2)
  1. ACETYLSALICYLIC ACID [Suspect]
     Active Substance: ASPIRIN
     Indication: DRUG PROVOCATION TEST
  2. ACETYLSALICYLIC ACID [Suspect]
     Active Substance: ASPIRIN
     Indication: RESPIRATORY TRACT INFECTION
     Dosage: 375 MG, UNK
     Route: 065

REACTIONS (6)
  - Therapeutic product cross-reactivity [Unknown]
  - Pruritus [Unknown]
  - Drug hypersensitivity [Unknown]
  - Product use in unapproved indication [Unknown]
  - Conjunctival hyperaemia [Unknown]
  - Urticaria [Unknown]
